FAERS Safety Report 9445386 (Version 2)
Quarter: 2013Q3

REPORT INFORMATION
  Report Type: Spontaneous
  Country: US (occurrence: US)
  Receive Date: 20130807
  Receipt Date: 20130911
  Transmission Date: 20140515
  Serious: No
  Sender: FDA-Public Use
  Company Number: US-PFIZER INC-2013226626

PATIENT
  Age: 73 Year
  Sex: Male
  Weight: 87.08 kg

DRUGS (1)
  1. PROTONIX [Suspect]
     Dosage: UNK
     Route: 042
     Dates: start: 20130731, end: 201308

REACTIONS (4)
  - Extrasystoles [Unknown]
  - Blood glucose increased [Unknown]
  - Blood calcium increased [Unknown]
  - C-reactive protein increased [Unknown]
